FAERS Safety Report 6645845-2 (Version None)
Quarter: 2010Q1

REPORT INFORMATION
  Report Type: 
  Country: None (occurrence: None)
  Receive Date: 20100323
  Receipt Date: 20100314
  Transmission Date: 20100710
  Serious: Yes (Hospitalization, Other)
  Sender: FDA-Public Use
  Company Number: NL-ABBOTT-10P-114-0628699-00

PATIENT
  Sex: Female
  Weight: 68 kg

DRUGS (2)
  1. LEUPRORELINE DEPOT FOR INJECTION [Suspect]
     Indication: UTERINE LEIOMYOMA
     Route: 058
     Dates: start: 20091124
  2. HYDROCHLOROTHIAZIDE W/RAMIPRIL [Concomitant]
     Indication: HYPERTENSION
     Dosage: 5/25MG DAILY
     Route: 048
     Dates: start: 20090701

REACTIONS (5)
  - CARPAL TUNNEL SYNDROME [None]
  - HOT FLUSH [None]
  - MENOPAUSAL SYMPTOMS [None]
  - MOOD SWINGS [None]
  - OEDEMA PERIPHERAL [None]
